FAERS Safety Report 9337816 (Version 2)
Quarter: 2013Q2

REPORT INFORMATION
  Report Type: Spontaneous
  Country: US (occurrence: US)
  Receive Date: 20130607
  Receipt Date: 20130624
  Transmission Date: 20140414
  Serious: No
  Sender: FDA-Public Use
  Company Number: US-PFIZER INC-2013170636

PATIENT
  Age: 62 Year
  Sex: Male
  Weight: 92.52 kg

DRUGS (7)
  1. CELEBREX [Suspect]
     Indication: OSTEOARTHRITIS
     Dosage: 200 MG, 1X/DAY
     Route: 048
  2. CELEBREX [Suspect]
     Dosage: 200 MG, 2X/DAY
     Route: 048
  3. GABAPENTIN [Suspect]
     Indication: SCIATICA
     Dosage: 300 MG, 3X/DAY
     Route: 048
  4. TYLENOL EXTRA-STRENGTH [Suspect]
     Dosage: UNK
  5. WELCHOL [Concomitant]
     Dosage: UNK
  6. LOVAZA [Concomitant]
     Dosage: UNK
  7. MICARDIS [Concomitant]
     Dosage: 40 MG, 1X/DAY

REACTIONS (3)
  - Musculoskeletal stiffness [Unknown]
  - Rash [Unknown]
  - Pain [Unknown]
